FAERS Safety Report 7347724-4 (Version None)
Quarter: 2011Q1

REPORT INFORMATION
  Report Type: 
  Country: None (occurrence: None)
  Receive Date: 20110311
  Receipt Date: 20110302
  Transmission Date: 20110831
  Serious: Yes (Other)
  Sender: FDA-Public Use
  Company Number: B0705210A

PATIENT
  Age: 15 Year
  Sex: Male

DRUGS (1)
  1. AMOXYCILLIN CLAVULANIC ACID [Suspect]
     Route: 065

REACTIONS (5)
  - ASTHENIA [None]
  - HEPATITIS CHOLESTATIC [None]
  - PYREXIA [None]
  - JAUNDICE [None]
  - CYTOLYTIC HEPATITIS [None]
